FAERS Safety Report 11052292 (Version 2)
Quarter: 2015Q2

REPORT INFORMATION
  Report Type: Spontaneous
  Country: CA (occurrence: CA)
  Receive Date: 20150421
  Receipt Date: 20150505
  Transmission Date: 20150821
  Serious: Yes (Other)
  Sender: FDA-Public Use
  Company Number: CA-TEVA-556250USA

PATIENT
  Age: 20 Year
  Sex: Female

DRUGS (1)
  1. TEVA- DOXYCYCLINE [Suspect]
     Active Substance: DOXYCYCLINE
     Indication: ACNE
     Dosage: 100 MILLIGRAM DAILY;
     Route: 048
     Dates: start: 20150130, end: 20150401

REACTIONS (3)
  - Fluid intake reduced [Unknown]
  - Feeding disorder [Unknown]
  - Chest pain [Unknown]

NARRATIVE: CASE EVENT DATE: 20150401
